FAERS Safety Report 5766346-X (Version None)
Quarter: 2008Q2

REPORT INFORMATION
  Report Type: 
  Country: None (occurrence: None)
  Receive Date: 20080611
  Receipt Date: 20080603
  Transmission Date: 20081010
  Serious: Yes (Death, Hospitalization)
  Sender: FDA-Public Use
  Company Number: IT-AMGEN-US282310

PATIENT
  Sex: Male

DRUGS (7)
  1. ENBREL [Suspect]
     Indication: PSORIATIC ARTHROPATHY
     Route: 058
     Dates: start: 20080410, end: 20080513
  2. MEDROL [Concomitant]
     Route: 048
  3. PRAMIPEXOLE DIHYDROCHLORIDE [Concomitant]
     Route: 065
  4. MADOPAR [Concomitant]
     Indication: EXTRAPYRAMIDAL DISORDER
     Dosage: 250 MG
     Route: 065
  5. SELEGILINE HCL [Concomitant]
     Route: 065
  6. METHOTREXATE [Concomitant]
     Indication: PSORIATIC ARTHROPATHY
     Route: 030
  7. VOLTAREN [Concomitant]
     Route: 065

REACTIONS (6)
  - ACUTE RESPIRATORY FAILURE [None]
  - CHEST PAIN [None]
  - HYPERGLYCAEMIA [None]
  - LEUKOPENIA [None]
  - PLEURAL EFFUSION [None]
  - RENAL FAILURE ACUTE [None]
